FAERS Safety Report 4478118-7 (Version None)
Quarter: 2004Q4

REPORT INFORMATION
  Report Type: 
  Country: None (occurrence: None)
  Receive Date: 20041018
  Receipt Date: 20041018
  Transmission Date: 20050328
  Serious: Yes (Life-Threatening, Disabling, Other)
  Sender: FDA-Public Use
  Company Number: None

PATIENT
  Age: 27 Year
  Sex: Male
  Weight: 90.7194 kg

DRUGS (3)
  1. PAXIL [Suspect]
     Indication: DEPRESSION
     Dosage: 30 MG DAILY ORAL
     Route: 048
     Dates: start: 20000201, end: 20041015
  2. PAXIL [Suspect]
     Indication: EMOTIONAL DISORDER
     Dosage: 30 MG DAILY ORAL
     Route: 048
     Dates: start: 20000201, end: 20041015
  3. PAROXETINE [Suspect]
     Dates: start: 20000201, end: 20041015

REACTIONS (23)
  - CARDIAC DISORDER [None]
  - CONVULSION [None]
  - DISTURBANCE IN ATTENTION [None]
  - DRUG WITHDRAWAL SYNDROME [None]
  - EYE MOVEMENT DISORDER [None]
  - FEELING ABNORMAL [None]
  - FEELING GUILTY [None]
  - HEARING IMPAIRED [None]
  - HYPOAESTHESIA [None]
  - IMPAIRED DRIVING ABILITY [None]
  - IMPAIRED WORK ABILITY [None]
  - LOSS OF CONSCIOUSNESS [None]
  - MEMORY IMPAIRMENT [None]
  - NERVOUS SYSTEM DISORDER [None]
  - NERVOUSNESS [None]
  - PAIN [None]
  - PETIT MAL EPILEPSY [None]
  - RESPIRATORY DISORDER [None]
  - TEARFULNESS [None]
  - THINKING ABNORMAL [None]
  - THREAT OF REDUNDANCY [None]
  - VISION BLURRED [None]
  - VISUAL DISTURBANCE [None]
